FAERS Safety Report 8254813-9 (Version None)
Quarter: 2012Q2

REPORT INFORMATION
  Report Type: 
  Country: None (occurrence: None)
  Receive Date: 20120403
  Receipt Date: 20120329
  Transmission Date: 20120825
  Serious: Yes (Other)
  Sender: FDA-Public Use
  Company Number: PHHY2012BR027627

PATIENT
  Age: 43 Year
  Sex: Female

DRUGS (3)
  1. COCAINE [Concomitant]
  2. MARIJUANA [Concomitant]
  3. RITALIN [Suspect]
     Route: 048

REACTIONS (7)
  - CARDIAC DISORDER [None]
  - AFFECT LABILITY [None]
  - OVERDOSE [None]
  - DEPRESSION [None]
  - FEELING ABNORMAL [None]
  - DELUSION [None]
  - PANIC DISORDER [None]
